FAERS Safety Report 4817282-4 (Version None)
Quarter: 2005Q4

REPORT INFORMATION
  Report Type: 
  Country: None (occurrence: None)
  Receive Date: 20051018
  Receipt Date: 20050422
  Transmission Date: 20060501
  Serious: Yes (Hospitalization)
  Sender: FDA-Public Use
  Company Number: PHEH2005US04697

PATIENT
  Age: 83 Year
  Sex: Female

DRUGS (6)
  1. ZOMETA [Suspect]
     Indication: METASTASES TO BONE
     Dosage: 4 MG Q4WK INTRAVENOUS
     Route: 042
     Dates: start: 20040520, end: 20050322
  2. GLIPIZIDE TABLETS USP (NGX) (GLIPIZIDE) [Concomitant]
  3. LOTREL [Concomitant]
  4. HYZAAR [Concomitant]
  5. VITAMIN D [Concomitant]
  6. CALCIUM GLUCONATE [Concomitant]

REACTIONS (1)
  - HYPOCALCAEMIA [None]
